FAERS Safety Report 7520860-5 (Version None)
Quarter: 2011Q2

REPORT INFORMATION
  Report Type: 
  Country: None (occurrence: None)
  Receive Date: 20110603
  Receipt Date: 20101026
  Transmission Date: 20111010
  Serious: Yes (Hospitalization, Other)
  Sender: FDA-Public Use
  Company Number: US-BAYER-201032543NA

PATIENT
  Age: 22 Year
  Sex: Female
  Weight: 61.364 kg

DRUGS (12)
  1. TORADOL [Concomitant]
     Indication: SLEEP DISORDER
     Dosage: 1 DF, UNK
     Route: 030
     Dates: start: 20061013, end: 20061013
  2. TORADOL [Concomitant]
     Indication: MIGRAINE
  3. ZOFRAN [Concomitant]
     Dosage: 4 MG Q8H
  4. DIAMOX [Concomitant]
     Dosage: 500 MG-250 MG-500 MG
  5. YASMIN [Suspect]
     Indication: ACNE
  6. SPIRONOLACTONE [Concomitant]
     Dates: start: 20060101, end: 20090101
  7. PHENERGAN HCL [Concomitant]
     Indication: MIGRAINE
     Dosage: DAILY DOSE 25 MG
     Route: 030
     Dates: start: 20061013, end: 20061013
  8. PHENERGAN HCL [Concomitant]
     Indication: SLEEP DISORDER
  9. YASMIN [Suspect]
     Indication: CONTRACEPTION
     Dosage: 1 DF, ONCE
     Route: 048
     Dates: start: 20060901, end: 20061001
  10. CORTICOSTEROIDS [Concomitant]
     Route: 061
  11. IBUPROFEN [Concomitant]
  12. COLACE [Concomitant]
     Route: 048

REACTIONS (10)
  - CEREBRAL VENOUS THROMBOSIS [None]
  - GALLBLADDER DISORDER [None]
  - HEPATIC ADENOMA [None]
  - DEEP VEIN THROMBOSIS [None]
  - EMBOLISM ARTERIAL [None]
  - HEADACHE [None]
  - CEREBROVASCULAR ACCIDENT [None]
  - PHOTOPHOBIA [None]
  - VENOUS THROMBOSIS [None]
  - HYPERTENSION [None]
